FAERS Safety Report 9169820 (Version 1)
Quarter: 2013Q1

REPORT INFORMATION
  Report Type: Spontaneous
  Country: US (occurrence: US)
  Receive Date: 20130319
  Receipt Date: 20130319
  Transmission Date: 20140127
  Serious: Yes (Hospitalization, Other)
  Sender: FDA-Public Use
  Company Number: 2013SP002842

PATIENT
  Age: 16 Year
  Sex: Male

DRUGS (30)
  1. HALOPERIDOL DECANOATE [Suspect]
     Indication: TOURETTE^S DISORDER
  2. FLUOXETINE HYDROCHLORIDE [Suspect]
     Indication: ANXIETY
     Route: 048
  3. FLUOXETINE HYDROCHLORIDE [Suspect]
     Indication: ANXIETY
  4. FLUOXETINE HYDROCHLORIDE [Suspect]
     Indication: ANXIETY
  5. FLUOXETINE HYDROCHLORIDE [Suspect]
     Indication: ANXIETY
  6. FLUOXETINE HYDROCHLORIDE [Suspect]
     Indication: ANXIETY
  7. FLUOXETINE HYDROCHLORIDE [Suspect]
     Indication: ANXIETY
  8. ZIPRASIDONE [Suspect]
     Indication: TIC
  9. ZIPRASIDONE [Suspect]
     Indication: TIC
  10. MIDAZOLAM [Suspect]
     Indication: TIC
     Route: 042
  11. RISPERIDONE [Suspect]
     Indication: TOURETTE^S DISORDER
  12. RISPERIDONE [Suspect]
     Indication: TOURETTE^S DISORDER
  13. TOPIRAMATE [Suspect]
     Indication: DECREASED APPETITE
  14. TOPIRAMATE [Suspect]
     Indication: DECREASED APPETITE
  15. ZOLPIDEM TARTRATE [Suspect]
     Indication: PRODUCT USED FOR UNKNOWN INDICATION
  16. TETRABENAZINE [Suspect]
     Indication: PRODUCT USED FOR UNKNOWN INDICATION
  17. PIMOZIDE [Suspect]
     Indication: PRODUCT USED FOR UNKNOWN INDICATION
  18. ARIPIPRAZOLE [Suspect]
     Indication: PRODUCT USED FOR UNKNOWN INDICATION
  19. BENZATROPINE [Suspect]
     Indication: TOURETTE^S DISORDER
  20. FLUPHENAZINE DECANOATE [Suspect]
     Indication: PRODUCT USED FOR UNKNOWN INDICATION
  21. DIPHENHYDRAMINE [Concomitant]
     Indication: TIC
  22. DIAZEPAM [Concomitant]
     Indication: TIC
  23. LORAZEPAM [Concomitant]
     Indication: TIC
     Route: 030
  24. ALPRAZOLAM [Concomitant]
     Indication: TIC
  25. ALPRAZOLAM [Concomitant]
     Indication: TIC
  26. DOCUSATE SODIUM [Concomitant]
     Route: 048
  27. METHYLPREDNISOLONE [Concomitant]
  28. RANITIDINE [Concomitant]
     Route: 042
  29. OLANZAPINE [Concomitant]
  30. FISH OIL [Concomitant]
     Route: 048

REACTIONS (21)
  - Drug interaction [Unknown]
  - Toxicity to various agents [Unknown]
  - Electrocardiogram QT prolonged [Recovered/Resolved]
  - Suicidal ideation [Recovered/Resolved]
  - Depression [Unknown]
  - Blood prolactin increased [Recovering/Resolving]
  - Weight increased [Not Recovered/Not Resolved]
  - Lethargy [Unknown]
  - Musculoskeletal stiffness [Recovering/Resolving]
  - Tic [Recovering/Resolving]
  - Decreased appetite [Recovering/Resolving]
  - Galactorrhoea [Recovering/Resolving]
  - Affective disorder [Recovering/Resolving]
  - Loss of consciousness [Recovered/Resolved]
  - Anxiety [Unknown]
  - Somnolence [Unknown]
  - Somnambulism [Unknown]
  - Bradykinesia [Unknown]
  - Unresponsive to stimuli [Recovering/Resolving]
  - Dyskinesia [Recovering/Resolving]
  - Coprolalia [Recovering/Resolving]
